FAERS Safety Report 17085266 (Version 1)
Quarter: 2019Q4

REPORT INFORMATION
  Report Type: Spontaneous
  Country: US (occurrence: US)
  Receive Date: 20191030
  Receipt Date: 20191030
  Transmission Date: 20200122
  Serious: Yes (Death)
  Sender: FDA-Public Use
  Company Number: None

PATIENT
  Age: 25 Year
  Sex: Male

DRUGS (8)
  1. OXYCODONE AND ACETAMINOPHEN [Concomitant]
     Active Substance: ACETAMINOPHEN\OXYCODONE HYDROCHLORIDE
  2. APRAZOLAM [Concomitant]
  3. FENTANYL. [Concomitant]
     Active Substance: FENTANYL
  4. FUROSEMIDE. [Concomitant]
     Active Substance: FUROSEMIDE
  5. METRONIDAZOLE. [Concomitant]
     Active Substance: METRONIDAZOLE
  6. GABAPENTIN. [Concomitant]
     Active Substance: GABAPENTIN
  7. OXYCODONE [Concomitant]
     Active Substance: OXYCODONE
  8. APREPITANT 125 MG/MG [Suspect]
     Active Substance: APREPITANT
     Dosage: 125 MG/MG DAY 1 ORAL
     Route: 048
     Dates: start: 20180319, end: 201910

REACTIONS (1)
  - Death [None]

NARRATIVE: CASE EVENT DATE: 20191023
